FAERS Safety Report 6022717-8 (Version None)
Quarter: 2008Q4

REPORT INFORMATION
  Report Type: 
  Country: None (occurrence: None)
  Receive Date: 20081230
  Receipt Date: 20081114
  Transmission Date: 20090506
  Serious: Yes (Other)
  Sender: FDA-Public Use
  Company Number: US-BRISTOL-MYERS SQUIBB COMPANY-14408017

PATIENT
  Age: 70 Year
  Sex: Male

DRUGS (1)
  1. SPRYCEL [Suspect]
     Indication: CHRONIC MYELOID LEUKAEMIA
     Dosage: 70 MG FOR 2 YRS; DECREASED TO 50MG BID; STOPPED FOR 6-7 MONTHS; RESTARTED-50MG QD 5 TIMES/WEEK.

REACTIONS (1)
  - APLASTIC ANAEMIA [None]
